FAERS Safety Report 24991821 (Version 2)
Quarter: 2025Q1

REPORT INFORMATION
  Report Type: Spontaneous
  Country: FI (occurrence: FI)
  Receive Date: 20250220
  Receipt Date: 20250221
  Transmission Date: 20250409
  Serious: No
  Sender: PURDUE
  Company Number: FI-NAPPMUNDI-GBR-2025-0123562

PATIENT
  Age: 65 Year
  Sex: Male

DRUGS (2)
  1. NORSPAN [Suspect]
     Active Substance: BUPRENORPHINE
     Indication: Pain
     Route: 065
  2. NORSPAN [Suspect]
     Active Substance: BUPRENORPHINE
     Route: 065

REACTIONS (8)
  - Paranoia [Unknown]
  - Mental disorder [Unknown]
  - Insomnia [Unknown]
  - Dysstasia [Unknown]
  - Impaired quality of life [Unknown]
  - Pain [Not Recovered/Not Resolved]
  - Tremor [Unknown]
  - Muscular weakness [Unknown]
